FAERS Safety Report 23112304 (Version 1)
Quarter: 2023Q4

REPORT INFORMATION
  Report Type: Spontaneous
  Country: IN (occurrence: IN)
  Receive Date: 20231027
  Receipt Date: 20231027
  Transmission Date: 20240109
  Serious: Yes (Life-Threatening, Hospitalization, Other)
  Sender: FDA-Public Use
  Company Number: IN-SANDOZ-SDZ2023IN045357

PATIENT
  Age: 69 Year
  Sex: Female

DRUGS (1)
  1. LOSARTAN [Suspect]
     Active Substance: LOSARTAN
     Indication: Hypertension
     Dosage: 50 MG ONCE EVERY EVENING
     Route: 048

REACTIONS (3)
  - Acute respiratory failure [Recovering/Resolving]
  - Angioedema [Recovering/Resolving]
  - Anaphylactic reaction [Unknown]
